FAERS Safety Report 17044056 (Version 5)
Quarter: 2021Q1

REPORT INFORMATION
  Report Type: Report from Study
  Country: JP (occurrence: JP)
  Receive Date: 20191118
  Receipt Date: 20210322
  Transmission Date: 20210419
  Serious: Yes (Hospitalization)
  Sender: FDA-Public Use
  Company Number: JP-EISAI MEDICAL RESEARCH-EC-2019-065427

PATIENT
  Age: 72 Year
  Sex: Female
  Weight: 53 kg

DRUGS (24)
  1. LENVATINIB [Suspect]
     Active Substance: LENVATINIB
     Route: 048
     Dates: start: 20191130, end: 20200111
  2. LENVATINIB [Suspect]
     Active Substance: LENVATINIB
     Route: 048
     Dates: start: 20200219, end: 20200410
  3. ADALAT CC [Concomitant]
     Active Substance: NIFEDIPINE
  4. DRENISON [Concomitant]
     Active Substance: FLURANDRENOLIDE
  5. EVEROLIMUS. [Suspect]
     Active Substance: EVEROLIMUS
     Dates: start: 20190615, end: 20190704
  6. EVEROLIMUS. [Suspect]
     Active Substance: EVEROLIMUS
     Dates: start: 20191130, end: 20200111
  7. MYALONE [Concomitant]
  8. AZULENE [Concomitant]
     Active Substance: AZULENE
  9. LENVATINIB [Suspect]
     Active Substance: LENVATINIB
     Route: 048
     Dates: start: 20190615, end: 20190704
  10. EVEROLIMUS. [Suspect]
     Active Substance: EVEROLIMUS
     Dates: start: 20200501
  11. ETIZOLAM [Concomitant]
     Active Substance: ETIZOLAM
  12. CLOBETASOL PROPIONATE. [Concomitant]
     Active Substance: CLOBETASOL PROPIONATE
  13. THYRADIN S [Concomitant]
     Active Substance: LEVOTHYROXINE SODIUM
  14. LENVATINIB [Suspect]
     Active Substance: LENVATINIB
     Indication: RENAL CELL CARCINOMA
     Route: 048
     Dates: start: 20190524, end: 20190607
  15. IRBESARTAN. [Concomitant]
     Active Substance: IRBESARTAN
  16. LENVATINIB [Suspect]
     Active Substance: LENVATINIB
     Route: 048
     Dates: start: 20190803, end: 20191112
  17. FEBURIC [Concomitant]
     Active Substance: FEBUXOSTAT
  18. LENVATINIB [Suspect]
     Active Substance: LENVATINIB
     Route: 048
     Dates: start: 20200501
  19. VEGIN [Concomitant]
  20. EVEROLIMUS. [Suspect]
     Active Substance: EVEROLIMUS
     Dates: start: 20190803, end: 20191112
  21. EVEROLIMUS. [Suspect]
     Active Substance: EVEROLIMUS
     Dates: start: 20200219, end: 20200410
  22. TRIAMCINOLONE ACETONIDE. [Concomitant]
     Active Substance: TRIAMCINOLONE ACETONIDE
  23. EVEROLIMUS. [Suspect]
     Active Substance: EVEROLIMUS
     Indication: RENAL CELL CARCINOMA
     Dates: start: 20190524, end: 20190607
  24. FUROSEMIDE. [Concomitant]
     Active Substance: FUROSEMIDE

REACTIONS (2)
  - Cholecystitis [Recovered/Resolved]
  - Proteinuria [Recovered/Resolved]

NARRATIVE: CASE EVENT DATE: 20191112
